FAERS Safety Report 7808770-7 (Version None)
Quarter: 2011Q4

REPORT INFORMATION
  Report Type: 
  Country: None (occurrence: None)
  Receive Date: 20111012
  Receipt Date: 20110928
  Transmission Date: 20120403
  Serious: Yes (Other)
  Sender: FDA-Public Use
  Company Number: PHHY2011BR78827

PATIENT
  Sex: Female

DRUGS (1)
  1. EXFORGE [Suspect]
     Indication: HYPERTENSION
     Dosage: 1 DF( 160 MG VAL AND 5 MG AMLO), UNK
     Route: 048
     Dates: start: 20090101

REACTIONS (2)
  - PERIPHERAL VASCULAR DISORDER [None]
  - SKIN HYPERPIGMENTATION [None]
